FAERS Safety Report 20866412 (Version 2)
Quarter: 2022Q3

REPORT INFORMATION
  Report Type: Spontaneous
  Country: US (occurrence: US)
  Receive Date: 20220524
  Receipt Date: 20220720
  Transmission Date: 20221027
  Serious: No
  Sender: FDA-Public Use
  Company Number: US-PFIZER INC-202200586507

PATIENT
  Age: 73 Year
  Sex: Male

DRUGS (1)
  1. SOMAVERT [Suspect]
     Active Substance: PEGVISOMANT
     Indication: Acromegaly
     Dosage: 20 MG (5 DAYS PER WEEK, DAILY MONDAY - FRIDAY)
     Route: 058
     Dates: start: 20220412

REACTIONS (3)
  - Off label use [Unknown]
  - Off label use [Unknown]
  - Injection site bruising [Unknown]

NARRATIVE: CASE EVENT DATE: 20220412
